FAERS Safety Report 9665787 (Version 1)
Quarter: 2013Q4

REPORT INFORMATION
  Report Type: Spontaneous
  Country: US (occurrence: None)
  Receive Date: 20131031
  Receipt Date: 20131031
  Transmission Date: 20140711
  Serious: Yes (Other)
  Sender: FDA-Public Use
  Company Number: None

PATIENT
  Age: 51 Year
  Sex: Male
  Weight: 68.04 kg

DRUGS (10)
  1. GABAPENTIN [Suspect]
     Indication: DRUG DEPENDENCE
     Route: 048
     Dates: start: 20111010, end: 20111010
  2. CLONAZEPAM [Concomitant]
  3. ACIPHEX [Concomitant]
  4. ZEGERID [Concomitant]
  5. LEVOTHYROXINE [Concomitant]
  6. ASTEPRO NASAL SPARY [Concomitant]
  7. CLARITIN [Concomitant]
  8. VITAMIN D3 [Concomitant]
  9. THORNE BASIC NUTRIENTS III [Concomitant]
  10. PAXIL [Concomitant]

REACTIONS (8)
  - Headache [None]
  - Dizziness [None]
  - Dyspepsia [None]
  - Nausea [None]
  - Muscular weakness [None]
  - Feeling abnormal [None]
  - Gastrooesophageal reflux disease [None]
  - Vomiting [None]
